FAERS Safety Report 26208819 (Version 1)
Quarter: 2025Q4

REPORT INFORMATION
  Report Type: Spontaneous
  Country: US (occurrence: None)
  Receive Date: 20251226
  Receipt Date: 20251226
  Transmission Date: 20260117
  Serious: Yes (Hospitalization)
  Sender: FDA-CTU
  Company Number: None

PATIENT
  Sex: Male

DRUGS (11)
  1. VYNDAMAX [Suspect]
     Active Substance: TAFAMIDIS
     Indication: Cardiac amyloidosis
     Dosage: TAKE ONE 61MG CAPSULE BY MOUTH EVERY DAY
     Route: 048
     Dates: start: 20250822
  2. ASPIRIN CHW 81MG [Concomitant]
  3. ATORVASTATIN POW [Concomitant]
  4. COQ10 CAP 100MG [Concomitant]
  5. ENTRESTO [Concomitant]
     Active Substance: SACUBITRIL\VALSARTAN
  6. EZETIMIBE [Concomitant]
     Active Substance: EZETIMIBE
  7. FISH OIL  CAP [Concomitant]
  8. FOLIC ACID POW [Concomitant]
  9. GABAPENTIN POW [Concomitant]
  10. IRON TAB 325MG [Concomitant]
  11. JARDIANCE [Concomitant]
     Active Substance: EMPAGLIFLOZIN

REACTIONS (2)
  - Cerebrovascular accident [None]
  - Intentional dose omission [None]
